FAERS Safety Report 5844885-0 (Version None)
Quarter: 2008Q3

REPORT INFORMATION
  Report Type: 
  Country: None (occurrence: None)
  Receive Date: 20080814
  Receipt Date: 20080806
  Transmission Date: 20090109
  Serious: Yes (Hospitalization)
  Sender: FDA-Public Use
  Company Number: US-BAYER-200812780BCC

PATIENT
  Age: 78 Year
  Sex: Female

DRUGS (6)
  1. ASPIRIN [Suspect]
     Indication: CEREBROVASCULAR ACCIDENT
     Route: 048
     Dates: start: 19900101, end: 20041101
  2. PLAVIX [Suspect]
     Indication: CEREBROVASCULAR ACCIDENT
     Route: 048
     Dates: start: 19900101
  3. NORVASC [Concomitant]
     Indication: HYPERTENSION
     Route: 048
     Dates: start: 20080101, end: 20080609
  4. NORVASC [Concomitant]
     Route: 048
     Dates: start: 19900101, end: 20080101
  5. GABAPENTIN [Concomitant]
     Indication: ARTHRITIS
     Dosage: TOTAL DAILY DOSE: 2400 MG  UNIT DOSE: 400 MG
     Route: 048
  6. AGGRENOX [Concomitant]
     Dates: start: 20041101

REACTIONS (2)
  - MOUTH HAEMORRHAGE [None]
  - ULCER HAEMORRHAGE [None]
